FAERS Safety Report 7506435-2 (Version None)
Quarter: 2011Q2

REPORT INFORMATION
  Report Type: 
  Country: None (occurrence: None)
  Receive Date: 20110526
  Receipt Date: 20101029
  Transmission Date: 20111010
  Serious: Yes (Hospitalization, Other)
  Sender: FDA-Public Use
  Company Number: US-BAYER-201031733NA

PATIENT
  Age: 45 Year
  Sex: Female
  Weight: 88.435 kg

DRUGS (6)
  1. YASMIN [Suspect]
     Indication: CONTRACEPTION
     Dosage: UNK
     Route: 048
     Dates: start: 20051101, end: 20070901
  2. YAZ [Suspect]
     Indication: CONTRACEPTION
     Dosage: UNK
     Route: 048
     Dates: start: 20071001, end: 20080801
  3. ASCORBIC ACID [Concomitant]
  4. LEVOXYL [Concomitant]
     Dosage: UNK
     Dates: start: 20000801
  5. DOXYCYCLINE [Concomitant]
     Dosage: UNK
     Dates: start: 20080701
  6. MULTI-VITAMIN [Concomitant]

REACTIONS (5)
  - PULMONARY INFARCTION [None]
  - NEPHROLITHIASIS [None]
  - PULMONARY EMBOLISM [None]
  - DEEP VEIN THROMBOSIS [None]
  - HAEMOPTYSIS [None]
